FAERS Safety Report 19662937 (Version 2)
Quarter: 2021Q3

REPORT INFORMATION
  Report Type: Report from Study
  Country: IL (occurrence: IL)
  Receive Date: 20210805
  Receipt Date: 20210817
  Transmission Date: 20211014
  Serious: Yes (Death, Hospitalization, Other)
  Sender: FDA-Public Use
  Company Number: IL-PFIZER INC-202100996502

PATIENT
  Age: 89 Year
  Sex: Male

DRUGS (3)
  1. ELIQUIS [Concomitant]
     Active Substance: APIXABAN
     Indication: ATRIAL FIBRILLATION
     Dosage: 2.5 MG, 2X/DAY
     Route: 048
     Dates: start: 20210522
  2. SPIRONOLACTONE. [Concomitant]
     Active Substance: SPIRONOLACTONE
     Indication: CARDIAC FAILURE
     Dosage: 12.5 MG, DAILY
     Route: 048
     Dates: start: 20190701
  3. TAFAMIDIS [Suspect]
     Active Substance: TAFAMIDIS MEGLUMINE
     Indication: CARDIAC AMYLOIDOSIS
     Dosage: 61 MG, DAILY
     Route: 048
     Dates: start: 20190724, end: 20210629

REACTIONS (7)
  - Sepsis [Fatal]
  - Speech disorder [Unknown]
  - Pyrexia [Unknown]
  - Facial paresis [Unknown]
  - Tachypnoea [Unknown]
  - Cerebrovascular accident [Unknown]
  - Dysphagia [Unknown]

NARRATIVE: CASE EVENT DATE: 20210520
